FAERS Safety Report 4887606-0 (Version None)
Quarter: 2006Q1

REPORT INFORMATION
  Report Type: 
  Country: None (occurrence: None)
  Receive Date: 20060119
  Receipt Date: 20060119
  Transmission Date: 20060701
  Serious: Yes (Hospitalization)
  Sender: FDA-Public Use
  Company Number: None

PATIENT
  Age: 74 Year
  Sex: Male
  Weight: 80.7403 kg

DRUGS (3)
  1. CAPECITABINE PO [Suspect]
     Dosage: 2000 MG PO BID
     Route: 048
  2. OXALIPLATIN IV [Suspect]
     Dosage: 250 MG IV X 1
  3. BEVACIZUMAB 600 MG IV X 1 [Suspect]
     Route: 042

REACTIONS (5)
  - ASTHENIA [None]
  - DYSARTHRIA [None]
  - PHOTOPHOBIA [None]
  - SOMNOLENCE [None]
  - TONGUE PARALYSIS [None]
